FAERS Safety Report 23425944 (Version 1)
Quarter: 2024Q1

REPORT INFORMATION
  Report Type: Report from Study
  Country: US (occurrence: US)
  Receive Date: 20240122
  Receipt Date: 20240122
  Transmission Date: 20240409
  Serious: No
  Sender: FDA-Public Use
  Company Number: US-Accord-379524

PATIENT
  Sex: Female
  Weight: 48.99 kg

DRUGS (4)
  1. CLOZAPINE [Suspect]
     Active Substance: CLOZAPINE
     Indication: Bipolar disorder
     Dosage: 200MG, EVERY MORNING AND 300MG EVERY NIGHT
     Route: 048
  2. LITHIUM [Concomitant]
     Active Substance: LITHIUM
  3. DULOXETINE [Concomitant]
     Active Substance: DULOXETINE
  4. LORAZEPAM [Concomitant]
     Active Substance: LORAZEPAM

REACTIONS (1)
  - Off label use [Unknown]
